FAERS Safety Report 5215032-3 (Version None)
Quarter: 2007Q1

REPORT INFORMATION
  Report Type: 
  Country: None (occurrence: None)
  Receive Date: 20070122
  Receipt Date: 20070112
  Transmission Date: 20070707
  Serious: Yes (Hospitalization, Other)
  Sender: FDA-Public Use
  Company Number: US-PFIZER INC-2006129005

PATIENT
  Sex: Female
  Weight: 54.4 kg

DRUGS (10)
  1. LIPITOR [Suspect]
     Indication: BLOOD TRIGLYCERIDES INCREASED
  2. LIPITOR [Suspect]
     Indication: HYPERLIPIDAEMIA
  3. CLONIDINE [Concomitant]
  4. PREMARIN [Concomitant]
  5. VITAMIN D [Concomitant]
  6. VITAMIN B COMPLEX CAP [Concomitant]
  7. CALCIUM [Concomitant]
  8. LEVOTHYROXINE SODIUM [Concomitant]
     Indication: HYPOTHYROIDISM
  9. METFORMIN HCL [Concomitant]
     Indication: DIABETES MELLITUS
     Dates: start: 20060101
  10. RANITIDINE [Concomitant]
     Dates: start: 20040101

REACTIONS (13)
  - BLOOD TRIGLYCERIDES INCREASED [None]
  - BODY HEIGHT DECREASED [None]
  - DIABETES MELLITUS [None]
  - DIARRHOEA [None]
  - DISCOMFORT [None]
  - GASTROINTESTINAL DISORDER [None]
  - HERNIA [None]
  - INFLUENZA [None]
  - MALAISE [None]
  - NAUSEA [None]
  - PANCREATITIS [None]
  - PEPTIC ULCER [None]
  - SPINAL DISORDER [None]
